FAERS Safety Report 6229971-8 (Version None)
Quarter: 2009Q2

REPORT INFORMATION
  Report Type: 
  Country: None (occurrence: None)
  Receive Date: 20090615
  Receipt Date: 20090609
  Transmission Date: 20091009
  Serious: Yes (Life-Threatening, Hospitalization)
  Sender: FDA-Public Use
  Company Number: FI-ASTRAZENECA-2009SE01749

PATIENT
  Age: 15738 Day
  Sex: Female

DRUGS (9)
  1. SEROQUEL [Suspect]
     Indication: BIPOLAR DISORDER
     Route: 048
     Dates: start: 20090201
  2. ARCOXIA [Concomitant]
     Route: 048
  3. ATARAX [Concomitant]
     Route: 048
  4. CETIRIZINE [Concomitant]
     Dosage: ONE DOSE ONE OR TWO TIMES A DAY
     Route: 048
  5. VENTOLINE DISCUS [Concomitant]
     Dosage: ONE DOSE ONE TO THREE TIMES A DAY AS NEEDED
     Route: 055
  6. NASONEX [Concomitant]
     Dosage: TWO DOSES IN THE MORNING AND TWO DOSES IN THE EVENING
     Route: 045
  7. IMOVANE [Concomitant]
     Route: 048
  8. SOMAC [Concomitant]
     Dosage: ONE DOSE ONE OR TWO TIMES A DAY
     Route: 048
  9. AEROBEC AUTOHALER [Concomitant]
     Dosage: ONE DOSE DAILY
     Route: 055

REACTIONS (3)
  - ARRHYTHMIA [None]
  - SUPRAVENTRICULAR TACHYCARDIA [None]
  - TACHYCARDIA PAROXYSMAL [None]
